FAERS Safety Report 18129208 (Version 2)
Quarter: 2020Q3

REPORT INFORMATION
  Report Type: Spontaneous
  Country: IN (occurrence: IN)
  Receive Date: 20200810
  Receipt Date: 20200817
  Transmission Date: 20201103
  Serious: Yes (Hospitalization, Other)
  Sender: FDA-Public Use
  Company Number: IN-TORRENT-00002571

PATIENT
  Age: 67 Year
  Sex: Female

DRUGS (3)
  1. CLOPIDOGREL/ACETYLSALICYLIC ACID [Suspect]
     Active Substance: ASPIRIN\CLOPIDOGREL
     Indication: HYPERTENSION
     Dates: start: 20180110
  2. METOPROLOL. [Suspect]
     Active Substance: METOPROLOL
     Indication: HYPERTENSION
     Dates: start: 20180110
  3. TELMISARTAN. [Suspect]
     Active Substance: TELMISARTAN
     Indication: HYPERTENSION
     Dosage: UNKNOWN
     Dates: start: 20180126, end: 20180207

REACTIONS (9)
  - Mouth ulceration [Recovered/Resolved]
  - Dysphagia [Recovering/Resolving]
  - Chronic gastritis [Unknown]
  - Drug hypersensitivity [Recovering/Resolving]
  - Angioedema [Recovered/Resolved]
  - Haemorrhage [Recovering/Resolving]
  - Stomatitis [Recovered/Resolved]
  - Soft tissue injury [Recovered/Resolved]
  - Oral toxicity [Recovered/Resolved]

NARRATIVE: CASE EVENT DATE: 201801
